FAERS Safety Report 8312677-9 (Version None)
Quarter: 2012Q2

REPORT INFORMATION
  Report Type: 
  Country: None (occurrence: None)
  Receive Date: 20120426
  Receipt Date: 20120419
  Transmission Date: 20120825
  Serious: Yes (Hospitalization)
  Sender: FDA-Public Use
  Company Number: US-AMGEN-USASP2012024927

PATIENT
  Age: 61 Year
  Sex: Male

DRUGS (1)
  1. ENBREL [Suspect]
     Indication: RHEUMATOID ARTHRITIS
     Dosage: 50 MG, QWK
     Dates: start: 20111028, end: 20120401

REACTIONS (6)
  - CYSTITIS [None]
  - KIDNEY INFECTION [None]
  - VIRAL INFECTION [None]
  - PNEUMONIA [None]
  - PROSTATOMEGALY [None]
  - INTESTINAL OBSTRUCTION [None]
